FAERS Safety Report 7936906-6 (Version None)
Quarter: 2011Q4

REPORT INFORMATION
  Report Type: 
  Country: None (occurrence: None)
  Receive Date: 20111123
  Receipt Date: 20111111
  Transmission Date: 20120403
  Serious: Yes (Death)
  Sender: FDA-Public Use
  Company Number: US-MYLANLABS-2011S1023717

PATIENT
  Age: 40 Year
  Sex: Male

DRUGS (3)
  1. VALPROATE SODIUM [Concomitant]
     Route: 065
  2. TOPIRAMATE [Suspect]
     Indication: CONVULSION
     Route: 065
  3. METFORMIN W/ROSIGLITAZONE [Concomitant]
     Route: 065

REACTIONS (2)
  - HYPERTHERMIA [None]
  - CARDIAC ARREST [None]
